FAERS Safety Report 7957713-4 (Version None)
Quarter: 2011Q4

REPORT INFORMATION
  Report Type: 
  Country: None (occurrence: None)
  Receive Date: 20111205
  Receipt Date: 20111129
  Transmission Date: 20120403
  Serious: Yes (Hospitalization)
  Sender: FDA-Public Use
  Company Number: PHHY2011NL104654

PATIENT
  Sex: Male

DRUGS (16)
  1. ZOMETA [Suspect]
     Indication: PROSTATE CANCER METASTATIC
     Dosage: 1 DF, (4MG/5ML, ONCE PER 28 DAYS)
     Dates: start: 20111028
  2. ZOMETA [Suspect]
     Dosage: 1 DF, (4MG/5ML, ONCE PER 28 DAYS)
     Dates: start: 20111129
  3. SIMVASTATIN [Concomitant]
     Dosage: 40MG 1X1
  4. DIOVAN [Concomitant]
     Dosage: 80MG 1X1
  5. TEMAZEPAM [Concomitant]
     Dosage: 20 MG 1X1
  6. SPIRIVA [Concomitant]
     Dosage: 2.5 UG 1X2
  7. DOXYCYCLINE [Concomitant]
     Dosage: 10 MG, UNK
  8. FORADIL [Concomitant]
     Dosage: 12 UG 2X2 INHALATIONS
  9. SYMBICORT [Concomitant]
  10. AVODART [Concomitant]
     Dosage: 0.5MG 1X1
  11. PREDNISOLONE [Concomitant]
     Dosage: 5MG 2X1
  12. BICALUTAMIDE [Concomitant]
     Dosage: 50MG 1X1
  13. ACETYLCYSTEINE [Concomitant]
     Dosage: 600 MG EFFERVESCENT TABLET 1X1
  14. PANTOPRAZOLE SODIUM [Concomitant]
     Dosage: 40 MG 1X1
  15. TRAMADOL HCL [Concomitant]
  16. FORMOTEROL FUMARATE [Concomitant]
     Dosage: 12UG/DOSIS 2X1 INHALATION

REACTIONS (3)
  - BONE PAIN [None]
  - FATIGUE [None]
  - GENERAL PHYSICAL HEALTH DETERIORATION [None]
